FAERS Safety Report 18403990 (Version 1)
Quarter: 2020Q4

REPORT INFORMATION
  Report Type: Spontaneous
  Country: US (occurrence: US)
  Receive Date: 20201020
  Receipt Date: 20201020
  Transmission Date: 20210114
  Serious: No
  Sender: FDA-Public Use
  Company Number: US-BAYER-2020-222288

PATIENT
  Age: 76 Year
  Sex: Female

DRUGS (2)
  1. MIRALAX [Suspect]
     Active Substance: POLYETHYLENE GLYCOL 3350
     Indication: IRRITABLE BOWEL SYNDROME
     Dosage: 17 G, QD IN 4-8 OF COFFEE
     Route: 048
     Dates: start: 2017, end: 20201014
  2. MIRALAX [Suspect]
     Active Substance: POLYETHYLENE GLYCOL 3350
     Indication: ABDOMINAL DISTENSION

REACTIONS (7)
  - Product use in unapproved indication [Unknown]
  - Product solubility abnormal [Unknown]
  - Frequent bowel movements [Unknown]
  - Abdominal distension [Unknown]
  - Constipation [Unknown]
  - Product taste abnormal [Unknown]
  - Off label use [Unknown]

NARRATIVE: CASE EVENT DATE: 2017
